FAERS Safety Report 4738440-3 (Version None)
Quarter: 2005Q3

REPORT INFORMATION
  Report Type: 
  Country: None (occurrence: None)
  Receive Date: 20050803
  Receipt Date: 20050721
  Transmission Date: 20060218
  Serious: Yes (Death)
  Sender: FDA-Public Use
  Company Number: 2005105647

PATIENT
  Age: 65 Year
  Sex: Male
  Weight: 55 kg

DRUGS (4)
  1. FRAGMIN [Suspect]
     Indication: ACUTE MYOCARDIAL INFARCTION
     Dosage: 10000 I.U. (5000 I.U., 2 IN 1 D), SUBCUTANEOUS
     Route: 058
     Dates: start: 20050602
  2. STREPTASE [Concomitant]
  3. ACETYLSALICYLIC ACID SRT [Concomitant]
  4. CLOPIDOGREL BISULFATE [Concomitant]

REACTIONS (1)
  - GINGIVAL BLEEDING [None]
